FAERS Safety Report 10024213 (Version 1)
Quarter: 2014Q1

REPORT INFORMATION
  Report Type: Spontaneous
  Country: US (occurrence: None)
  Receive Date: 20140304
  Receipt Date: 20140304
  Transmission Date: 20141002
  Serious: Yes (Other)
  Sender: FDA-Public Use
  Company Number: RB-55393-2013

PATIENT
  Age: 30 Year
  Sex: Female

DRUGS (3)
  1. SUBOXONE [Suspect]
     Indication: DRUG DEPENDENCE
     Route: 060
     Dates: start: 2011
  2. SUBOXONE [Suspect]
     Indication: DRUG DEPENDENCE
     Dosage: (SUBOXONE FILM; VARIOS TAPERED DOSES SUBLINGUAL)?
     Route: 060
     Dates: end: 201210
  3. CONTRACEPTIVES [Concomitant]

REACTIONS (5)
  - Dyspnoea [None]
  - Underdose [None]
  - Wrong technique in drug usage process [None]
  - Soft tissue inflammation [None]
  - Anxiety [None]
